FAERS Safety Report 8102910-0 (Version None)
Quarter: 2012Q1

REPORT INFORMATION
  Report Type: 
  Country: None (occurrence: None)
  Receive Date: 20120201
  Receipt Date: 20120119
  Transmission Date: 20120608
  Serious: Yes (Other)
  Sender: FDA-Public Use
  Company Number: CA-JNJFOC-20120113356

PATIENT
  Sex: Female

DRUGS (4)
  1. REMICADE [Suspect]
     Indication: CROHN'S DISEASE
     Route: 042
     Dates: start: 20020627
  2. PENTASA [Concomitant]
     Route: 065
  3. ALL OTHER THERAPEUTICS [Concomitant]
     Route: 065
  4. WELLBUTRIN [Concomitant]
     Route: 065

REACTIONS (1)
  - BIOPSY [None]
